FAERS Safety Report 10469248 (Version 1)
Quarter: 2014Q3

REPORT INFORMATION
  Report Type: Spontaneous
  Country: US (occurrence: None)
  Receive Date: 20140922
  Receipt Date: 20140922
  Transmission Date: 20150326
  Serious: Yes (Hospitalization)
  Sender: FDA-Public Use
  Company Number: None

PATIENT
  Age: 71 Year
  Sex: Female
  Weight: 80 kg

DRUGS (9)
  1. CHOLECALCIFEROL [Concomitant]
     Active Substance: CHOLECALCIFEROL
  2. ZYVOX [Suspect]
     Active Substance: LINEZOLID
     Indication: WOUND INFECTION STAPHYLOCOCCAL
     Route: 048
     Dates: start: 20140425, end: 20140506
  3. ASPIRIN. [Concomitant]
     Active Substance: ASPIRIN
  4. ZINC SULFATE [Concomitant]
     Active Substance: ZINC SULFATE\ZINC SULFATE ANHYDROUS
  5. OXYCODONE [Concomitant]
     Active Substance: OXYCODONE
  6. CLOPIDOGREL [Concomitant]
     Active Substance: CLOPIDOGREL BISULFATE
  7. AMIODARONE [Concomitant]
     Active Substance: AMIODARONE
  8. PRAVASTATIN [Concomitant]
     Active Substance: PRAVASTATIN\PRAVASTATIN SODIUM
  9. METOPROLOL TARTRATE. [Concomitant]
     Active Substance: METOPROLOL TARTRATE

REACTIONS (3)
  - Oedema peripheral [None]
  - Renal failure [None]
  - Debridement [None]

NARRATIVE: CASE EVENT DATE: 20140506
